FAERS Safety Report 9403059 (Version 3)
Quarter: 2014Q1

REPORT INFORMATION
  Report Type: Spontaneous
  Country: US (occurrence: US)
  Receive Date: 20130716
  Receipt Date: 20140203
  Transmission Date: 20141002
  Serious: Yes (Hospitalization)
  Sender: FDA-Public Use
  Company Number: US-GLAXOSMITHKLINE-A1033288A

PATIENT
  Age: 52 Year
  Sex: Female

DRUGS (1)
  1. AVANDIA [Suspect]
     Indication: TYPE 2 DIABETES MELLITUS
     Dosage: 2MG PER DAY
     Route: 048
     Dates: start: 200306, end: 200701

REACTIONS (5)
  - Cardiac failure congestive [Unknown]
  - Cardiac disorder [Unknown]
  - Cardiomegaly [Unknown]
  - Electrocardiogram change [Unknown]
  - Heart valve incompetence [Unknown]
